FAERS Safety Report 19899340 (Version 5)
Quarter: 2022Q1

REPORT INFORMATION
  Report Type: Other
  Country: LB (occurrence: None)
  Receive Date: 20210930
  Receipt Date: 20220315
  Transmission Date: 20220423
  Serious: Yes (Other)
  Sender: FDA-Public Use
  Company Number: LB-ROCHE-2775558

PATIENT
  Age: 72 Year
  Sex: Female

DRUGS (1)
  1. TECENTRIQ [Suspect]
     Active Substance: ATEZOLIZUMAB
     Indication: Lung neoplasm malignant
     Route: 042
     Dates: start: 20200925, end: 20210107

REACTIONS (10)
  - Pneumonia [Recovering/Resolving]
  - Metastases to central nervous system [Unknown]
  - Headache [Unknown]
  - Memory impairment [Unknown]
  - Immunodeficiency [Unknown]
  - Blood disorder [Unknown]
  - Fatigue [Unknown]
  - Gait inability [Unknown]
  - Decreased appetite [Unknown]
  - General physical health deterioration [Unknown]

NARRATIVE: CASE EVENT DATE: 20210116
